FAERS Safety Report 18317618 (Version 3)
Quarter: 2020Q4

REPORT INFORMATION
  Report Type: Spontaneous
  Country: US (occurrence: US)
  Receive Date: 20200928
  Receipt Date: 20201007
  Transmission Date: 20210113
  Serious: No
  Sender: FDA-Public Use
  Company Number: US-JNJFOC-20200929041

PATIENT
  Sex: Female

DRUGS (2)
  1. PEPCID AC [Suspect]
     Active Substance: FAMOTIDINE
     Indication: DYSPEPSIA
  2. PEPCID AC [Suspect]
     Active Substance: FAMOTIDINE
     Indication: DISCOMFORT
     Dosage: 1 TABLET?PRODUCT LAST ADMIN DATE: 14-SEP-2020
     Route: 048
     Dates: start: 20200913

REACTIONS (1)
  - Drug ineffective [Unknown]

NARRATIVE: CASE EVENT DATE: 202009
